FAERS Safety Report 20735450 (Version 9)
Quarter: 2022Q3

REPORT INFORMATION
  Report Type: Other
  Country: CA (occurrence: None)
  Receive Date: 20220421
  Receipt Date: 20220906
  Transmission Date: 20221027
  Serious: No
  Sender: FDA-Public Use
  Company Number: CA-ROCHE-3069199

PATIENT
  Age: 40 Year
  Sex: Male

DRUGS (9)
  1. OCREVUS [Suspect]
     Active Substance: OCRELIZUMAB
     Indication: Relapsing-remitting multiple sclerosis
     Dosage: 300 MG AT DAY 0 AND 14, THEN 600 MG EVERY 6 MONTH
     Route: 042
     Dates: start: 20220401
  2. ATORVASTATIN [Concomitant]
     Active Substance: ATORVASTATIN
  3. RAMIPRIL [Concomitant]
     Active Substance: RAMIPRIL
  4. ESCITALOPRAM [Concomitant]
     Active Substance: ESCITALOPRAM OXALATE
  5. DOMPERIDONE [Concomitant]
     Active Substance: DOMPERIDONE
  6. VITAMIN C [Concomitant]
     Active Substance: ASCORBIC ACID
  7. BENADRYL [Concomitant]
     Active Substance: DIPHENHYDRAMINE HYDROCHLORIDE
  8. FLUOROMETHOLONE [Concomitant]
     Active Substance: FLUOROMETHOLONE
  9. SOLU-MEDROL [Concomitant]
     Active Substance: METHYLPREDNISOLONE SODIUM SUCCINATE
     Route: 042

REACTIONS (5)
  - Infusion related reaction [Recovered/Resolved]
  - Eye ulcer [Recovered/Resolved]
  - SARS-CoV-2 test positive [Recovered/Resolved]
  - Seasonal allergy [Unknown]
  - Somnolence [Unknown]

NARRATIVE: CASE EVENT DATE: 20220401
